FAERS Safety Report 7364676-1 (Version None)
Quarter: 2011Q1

REPORT INFORMATION
  Report Type: 
  Country: None (occurrence: None)
  Receive Date: 20110321
  Receipt Date: 20110314
  Transmission Date: 20110831
  Serious: Yes (Hospitalization)
  Sender: FDA-Public Use
  Company Number: US-SANOFI-AVENTIS-2011SA010532

PATIENT
  Age: 77 Year
  Sex: Male
  Weight: 125 kg

DRUGS (6)
  1. COREG [Concomitant]
  2. ASPIRIN [Concomitant]
  3. GEMFIBROZIL [Concomitant]
  4. METFORMIN [Concomitant]
  5. LANTUS [Suspect]
     Dosage: DOSE:30 UNIT(S)
     Route: 058
  6. VALSARTAN [Concomitant]

REACTIONS (2)
  - ELECTROCARDIOGRAM ABNORMAL [None]
  - MYOCARDIAL INFARCTION [None]
